FAERS Safety Report 20434593 (Version 1)
Quarter: 2022Q1

REPORT INFORMATION
  Report Type: Report from Study
  Country: MX (occurrence: MX)
  Receive Date: 20220206
  Receipt Date: 20220206
  Transmission Date: 20220424
  Serious: Yes (Death, Hospitalization)
  Sender: FDA-Public Use
  Company Number: MX-NOVARTISPH-NVSC2020MX007168

PATIENT
  Age: 63 Year
  Sex: Male
  Weight: 75 kg

DRUGS (2)
  1. ENTRESTO [Suspect]
     Active Substance: SACUBITRIL\VALSARTAN
     Indication: Cardiac disorder
     Dosage: 50 MG, QD (HALF OR ONE TABLET)
     Route: 048
     Dates: start: 2017
  2. ENTRESTO [Suspect]
     Active Substance: SACUBITRIL\VALSARTAN
     Dosage: 100 MG, QD (ONE OR ONE AND HALF TABLET)
     Route: 048
     Dates: start: 201806

REACTIONS (8)
  - Cardiac disorder [Fatal]
  - Liver disorder [Fatal]
  - Renal disorder [Fatal]
  - Lung disorder [Fatal]
  - Cardiac failure [Fatal]
  - Product use in unapproved indication [Unknown]
  - Wrong technique in product usage process [Unknown]
  - Inappropriate schedule of product administration [Unknown]

NARRATIVE: CASE EVENT DATE: 20210602
